FAERS Safety Report 14008386 (Version 1)
Quarter: 2017Q3

REPORT INFORMATION
  Report Type: Spontaneous
  Country: FR (occurrence: FR)
  Receive Date: 20170925
  Receipt Date: 20170925
  Transmission Date: 20171128
  Serious: Yes (Hospitalization)
  Sender: FDA-Public Use
  Company Number: FR-JNJFOC-20170920570

PATIENT
  Age: 86 Year
  Sex: Male
  Weight: 77.9 kg

DRUGS (5)
  1. MONOTILDIEM [Concomitant]
     Active Substance: DILTIAZEM
     Route: 065
  2. ZELITREX [Concomitant]
     Active Substance: VALACYCLOVIR HYDROCHLORIDE
     Dosage: MORNING AND EVENING
     Route: 065
  3. IMBRUVICA [Suspect]
     Active Substance: IBRUTINIB
     Indication: CHRONIC LYMPHOCYTIC LEUKAEMIA
     Route: 048
     Dates: start: 20170705
  4. BACTRIM [Concomitant]
     Active Substance: SULFAMETHOXAZOLE\TRIMETHOPRIM
     Route: 065
     Dates: end: 20170911
  5. ESIDREX [Concomitant]
     Active Substance: HYDROCHLOROTHIAZIDE
     Route: 065

REACTIONS (10)
  - Rash maculo-papular [Unknown]
  - Hydrocele [Unknown]
  - Mucosal inflammation [Unknown]
  - Dysuria [Unknown]
  - Atrial fibrillation [Unknown]
  - Pain [Unknown]
  - Eczema [Unknown]
  - Pruritus [Unknown]
  - Diarrhoea [Unknown]
  - Omphalitis [Unknown]

NARRATIVE: CASE EVENT DATE: 2017
